FAERS Safety Report 9012968 (Version 2)
Quarter: 2013Q1

REPORT INFORMATION
  Report Type: Report from Study
  Country: DE (occurrence: DE)
  Receive Date: 20130114
  Receipt Date: 20130122
  Transmission Date: 20140127
  Serious: Yes (Hospitalization)
  Sender: FDA-Public Use
  Company Number: DE-GLAXOSMITHKLINE-B0858456A

PATIENT
  Age: 45 Year
  Sex: Female
  Weight: 69 kg

DRUGS (4)
  1. LAPATINIB [Suspect]
     Indication: BREAST CANCER
     Dosage: 250MG PER DAY
     Route: 048
     Dates: start: 20121017
  2. TAXOL [Suspect]
     Indication: BREAST CANCER
     Dosage: 146MG WEEKLY
     Route: 042
     Dates: start: 20121017
  3. MYOCET [Suspect]
     Indication: BREAST CANCER
     Dosage: 37MG WEEKLY
     Route: 042
     Dates: start: 20121017
  4. HERCEPTIN [Suspect]
     Indication: BREAST CANCER
     Dosage: 414MG CYCLIC
     Route: 042
     Dates: start: 20121017

REACTIONS (1)
  - Pneumonia [Recovered/Resolved]
